FAERS Safety Report 20177361 (Version 1)
Quarter: 2021Q4

REPORT INFORMATION
  Report Type: Spontaneous
  Country: US (occurrence: None)
  Receive Date: 20211212
  Receipt Date: 20211212
  Transmission Date: 20220303
  Serious: Yes (Other)
  Sender: FDA-Public Use
  Company Number: None

PATIENT
  Age: 24 Year
  Sex: Female
  Weight: 67.5 kg

DRUGS (2)
  1. LEVONORGESTREL [Suspect]
     Active Substance: LEVONORGESTREL
     Indication: Post coital contraception
     Dosage: FREQUENCY : AS NEEDED;?
     Route: 048
     Dates: start: 20211211, end: 20211211
  2. LEVONORGESTREL [Concomitant]
     Active Substance: LEVONORGESTREL
     Dates: start: 20211211, end: 20211211

REACTIONS (3)
  - Depression [None]
  - Anxiety [None]
  - Agitation [None]

NARRATIVE: CASE EVENT DATE: 20211211
